FAERS Safety Report 18789253 (Version 2)
Quarter: 2021Q3

REPORT INFORMATION
  Report Type: Report from Study
  Country: US (occurrence: US)
  Receive Date: 20210126
  Receipt Date: 20210724
  Transmission Date: 20211014
  Serious: No
  Sender: FDA-Public Use
  Company Number: US-TAKEDA-2021TUS003731

PATIENT
  Sex: Male
  Weight: 82 kg

DRUGS (15)
  1. SODIUM CHLORIDE. [Concomitant]
     Active Substance: SODIUM CHLORIDE
  2. METHOTREXATE ACCORD [Concomitant]
     Active Substance: METHOTREXATE
  3. LIDOCAINE. [Concomitant]
     Active Substance: LIDOCAINE
  4. AMLODIPINE;ATORVASTATIN [Concomitant]
  5. EPINEPHRINE. [Concomitant]
     Active Substance: EPINEPHRINE
  6. HUMAN NORMAL IMMUNOGLOBULIN; LIQUID [Suspect]
     Active Substance: HUMAN IMMUNOGLOBULIN G
     Indication: SELECTIVE IGG SUBCLASS DEFICIENCY
     Dosage: 25 GRAM, 1/WEEK
     Route: 042
     Dates: start: 20200706
  7. METHYLPREDNISOLONE. [Concomitant]
     Active Substance: METHYLPREDNISOLONE
  8. OLMESARTAN MEDOXOMIL, AMLODIPINE AND HYDROCHLOROTHIAZIDE [Concomitant]
     Active Substance: AMLODIPINE\HYDROCHLOROTHIAZIDE\OLMESARTAN
  9. LEXAPRO [Concomitant]
     Active Substance: ESCITALOPRAM OXALATE
  10. ADVANCED ASPIRIN [Concomitant]
  11. DIPHENHYDRAMINE. [Concomitant]
     Active Substance: DIPHENHYDRAMINE
  12. NORMAL SALINE [Concomitant]
     Active Substance: SODIUM CHLORIDE
  13. ACETAMINOPHEN. [Concomitant]
     Active Substance: ACETAMINOPHEN
  14. FOLIC ACID. [Concomitant]
     Active Substance: FOLIC ACID
  15. PLAVIX [Concomitant]
     Active Substance: CLOPIDOGREL BISULFATE
     Route: 065

REACTIONS (3)
  - Infusion related reaction [Unknown]
  - Product dose omission issue [Unknown]
  - Blood pressure abnormal [Unknown]
